FAERS Safety Report 8622016-1 (Version None)
Quarter: 2012Q3

REPORT INFORMATION
  Report Type: 
  Country: None (occurrence: None)
  Receive Date: 20120823
  Receipt Date: 20120823
  Transmission Date: 20120928
  Serious: Yes (Hospitalization)
  Sender: FDA-Public Use
  Company Number: None

PATIENT
  Sex: Female
  Weight: 9.1 kg

DRUGS (6)
  1. LACTULOSE [Concomitant]
  2. VINCRISTINE [Suspect]
     Indication: CENTRAL VENOUS CATHETERISATION
     Dosage: IV VIA SINGLE LUMEN
     Dates: start: 20120508
  3. ZOFRAN [Concomitant]
  4. LIDOCAIN/PRILOCAINE [Concomitant]
  5. MIRALAX [Concomitant]
  6. MAXITROL [Concomitant]

REACTIONS (3)
  - INFUSION SITE OEDEMA [None]
  - EXTRAVASATION [None]
  - CRYING [None]
